FAERS Safety Report 4371338-1 (Version None)
Quarter: 2004Q2

REPORT INFORMATION
  Report Type: 
  Country: None (occurrence: None)
  Receive Date: 20040603
  Receipt Date: 20040518
  Transmission Date: 20050107
  Serious: Yes (Other)
  Sender: FDA-Public Use
  Company Number: HQWYE012019MAY04

PATIENT
  Age: 55 Year
  Sex: Female

DRUGS (2)
  1. PREMPRO [Suspect]
     Indication: HORMONE REPLACEMENT THERAPY
     Dosage: ORAL
     Route: 048
     Dates: start: 19960101, end: 19980101
  2. PREMARIN [Suspect]
     Indication: OESTROGEN REPLACEMENT THERAPY

REACTIONS (1)
  - BREAST CANCER FEMALE [None]
